FAERS Safety Report 20536382 (Version 1)
Quarter: 2022Q1

REPORT INFORMATION
  Report Type: Spontaneous
  Country: CA (occurrence: CA)
  Receive Date: 20220302
  Receipt Date: 20220302
  Transmission Date: 20220423
  Serious: Yes (Other)
  Sender: FDA-Public Use
  Company Number: CA-JNJFOC-20211053548

PATIENT
  Age: 78 Year
  Sex: Female
  Weight: 73 kg

DRUGS (16)
  1. REMICADE [Suspect]
     Active Substance: INFLIXIMAB
     Indication: Colitis ulcerative
     Route: 042
  2. ATORVASTATIN CALCIUM [Concomitant]
     Active Substance: ATORVASTATIN CALCIUM
     Route: 065
  3. AZATHIOPRINE SODIUM [Concomitant]
     Active Substance: AZATHIOPRINE SODIUM
     Route: 048
  4. AZOPT [Concomitant]
     Active Substance: BRINZOLAMIDE
     Route: 047
  5. BRIMONIDINE [Concomitant]
     Active Substance: BRIMONIDINE TARTRATE
     Route: 065
  6. BRIMONIDINE TARTRATE\TIMOLOL MALEATE [Concomitant]
     Active Substance: BRIMONIDINE TARTRATE\TIMOLOL MALEATE
     Route: 047
  7. CANDESARTAN [Concomitant]
     Active Substance: CANDESARTAN
     Route: 065
  8. CITALOPRAM [Concomitant]
     Active Substance: CITALOPRAM HYDROBROMIDE
     Route: 048
  9. CLONAZEPAM [Concomitant]
     Active Substance: CLONAZEPAM
     Route: 065
  10. CYANOCOBALAMIN [Concomitant]
     Active Substance: CYANOCOBALAMIN
     Route: 065
  11. GLYBURIDE [Concomitant]
     Active Substance: GLYBURIDE
     Route: 048
  12. HYDROCORTISONE [Concomitant]
     Active Substance: HYDROCORTISONE
     Indication: Premedication
     Route: 042
  13. METFORMIN [Concomitant]
     Active Substance: METFORMIN HYDROCHLORIDE
     Route: 048
  14. OMEPRAZOLE [Concomitant]
     Active Substance: OMEPRAZOLE
     Route: 065
  15. RABEPRAZOLE [Concomitant]
     Active Substance: RABEPRAZOLE
     Route: 048
  16. TRAVOPROST [Concomitant]
     Active Substance: TRAVOPROST
     Route: 047

REACTIONS (4)
  - Proctitis ulcerative [Unknown]
  - Frequent bowel movements [Unknown]
  - Nausea [Unknown]
  - Off label use [Unknown]
